FAERS Safety Report 7091021-1 (Version None)
Quarter: 2010Q4

REPORT INFORMATION
  Report Type: 
  Country: None (occurrence: None)
  Receive Date: 20101105
  Receipt Date: 20101105
  Transmission Date: 20110411
  Serious: Yes (Hospitalization)
  Sender: FDA-Public Use
  Company Number: None

PATIENT
  Sex: Male
  Weight: 70 kg

DRUGS (3)
  1. CISPLATIN [Suspect]
     Dosage: 192 MG
  2. ETOPOSIDE [Suspect]
     Dosage: 304 MG
  3. GEMCITABINE HCL [Suspect]
     Dosage: 1900 MG

REACTIONS (6)
  - CARDIAC ARREST [None]
  - HYPOTENSION [None]
  - HYPOXIA [None]
  - PNEUMONIA [None]
  - SEPSIS [None]
  - TACHYPNOEA [None]
